FAERS Safety Report 18967369 (Version 1)
Quarter: 2021Q1

REPORT INFORMATION
  Report Type: Spontaneous
  Country: US (occurrence: US)
  Receive Date: 20210303
  Receipt Date: 20210303
  Transmission Date: 20210420
  Serious: Yes (Death)
  Sender: FDA-Public Use
  Company Number: None

PATIENT
  Age: 71 Year
  Sex: Male

DRUGS (11)
  1. ROSUVASTIN [Concomitant]
     Active Substance: ROSUVASTATIN
  2. PRAVASTATIN. [Concomitant]
     Active Substance: PRAVASTATIN
  3. SPIRONOLACT [Concomitant]
     Active Substance: SPIRONOLACTONE
  4. FARXIGA [Concomitant]
     Active Substance: DAPAGLIFLOZIN PROPANEDIOL
  5. TORSEMIDE. [Concomitant]
     Active Substance: TORSEMIDE
  6. FEROSUL [Concomitant]
     Active Substance: FERROUS SULFATE
  7. LISINOPRIL. [Concomitant]
     Active Substance: LISINOPRIL
  8. HYDRALAZINE [Concomitant]
     Active Substance: HYDRALAZINE HYDROCHLORIDE
  9. WARFIN [Concomitant]
     Active Substance: WARFARIN
  10. SILDENAFIL 20MG [Suspect]
     Active Substance: SILDENAFIL
     Indication: PULMONARY HYPERTENSION
     Route: 048
     Dates: start: 20200111
  11. GLIPIZED [Concomitant]

REACTIONS (1)
  - Death [None]

NARRATIVE: CASE EVENT DATE: 202102
